FAERS Safety Report 7772417-9 (Version None)
Quarter: 2011Q3

REPORT INFORMATION
  Report Type: 
  Country: None (occurrence: None)
  Receive Date: 20110922
  Receipt Date: 20110403
  Transmission Date: 20111222
  Serious: No
  Sender: FDA-Public Use
  Company Number: US-ASTRAZENECA-2011SE18791

PATIENT
  Age: 44 Year
  Sex: Female
  Weight: 66.7 kg

DRUGS (4)
  1. SEROQUEL [Suspect]
     Indication: BIPOLAR DISORDER
     Route: 048
     Dates: start: 20110101
  2. DEPAKOTE [Concomitant]
     Indication: BIPOLAR DISORDER
     Dosage: TWO TIMES A DAY
     Route: 048
  3. SEROQUEL [Suspect]
     Route: 048
  4. ESTROGENIC SUBSTANCE [Concomitant]
     Indication: HORMONE THERAPY
     Dosage: ONCE
     Route: 048

REACTIONS (6)
  - DRUG EFFECT DECREASED [None]
  - TREMOR [None]
  - FEELING DRUNK [None]
  - POOR QUALITY SLEEP [None]
  - MYALGIA [None]
  - SOMNOLENCE [None]
